FAERS Safety Report 9867016 (Version 1)
Quarter: 2014Q1

REPORT INFORMATION
  Report Type: Spontaneous
  Country: US (occurrence: None)
  Receive Date: 20140131
  Receipt Date: 20140131
  Transmission Date: 20141002
  Serious: Yes (Life-Threatening, Hospitalization)
  Sender: FDA-Public Use
  Company Number: TIR-02880

PATIENT
  Age: 53 Year
  Sex: Female
  Weight: 70.31 kg

DRUGS (4)
  1. TIROSINT [Suspect]
     Indication: HYPERTHYROIDISM
     Route: 048
     Dates: start: 20130805
  2. TIROSINT [Suspect]
     Indication: AUTOIMMUNE THYROIDITIS
     Route: 048
     Dates: start: 20130805
  3. TIROSINT [Suspect]
     Indication: HYPERTHYROIDISM
     Route: 048
  4. TIROSINT [Suspect]
     Indication: AUTOIMMUNE THYROIDITIS
     Route: 048

REACTIONS (11)
  - Suicidal ideation [None]
  - Affective disorder [None]
  - Condition aggravated [None]
  - Agitation [None]
  - Pain in extremity [None]
  - Social avoidant behaviour [None]
  - Irritability [None]
  - Diarrhoea [None]
  - Disease recurrence [None]
  - Blood thyroid stimulating hormone increased [None]
  - Arthralgia [None]
